FAERS Safety Report 9981912 (Version 1)
Quarter: 2014Q1

REPORT INFORMATION
  Report Type: Report from Study
  Country: US (occurrence: US)
  Receive Date: 20140307
  Receipt Date: 20140307
  Transmission Date: 20141002
  Serious: No
  Sender: FDA-Public Use
  Company Number: US-ABBVIE-13P-163-1177839-00

PATIENT
  Age: 47 Year
  Sex: Female

DRUGS (10)
  1. HUMIRA [Suspect]
     Indication: CROHN^S DISEASE
     Dates: start: 20131011
  2. IMURAN [Concomitant]
     Indication: CROHN^S DISEASE
  3. SERTRALINE [Concomitant]
     Indication: DEPRESSION
  4. SERTRALINE [Concomitant]
     Indication: ANXIETY
  5. AMLODIPINE BESYLATE [Concomitant]
     Indication: HYPERTENSION
  6. LISINOPRIL [Concomitant]
     Indication: HYPERTENSION
  7. VITAMIN B12 [Concomitant]
     Indication: PRODUCT USED FOR UNKNOWN INDICATION
     Dosage: SHOT
  8. FOLIC ACID [Concomitant]
     Indication: CROHN^S DISEASE
  9. FOLIC ACID [Concomitant]
     Indication: VITAMIN SUPPLEMENTATION
  10. LORAZEPAM [Concomitant]
     Indication: ANXIETY

REACTIONS (2)
  - Intestinal mass [Unknown]
  - Injection site pain [Not Recovered/Not Resolved]
